FAERS Safety Report 14533889 (Version 1)
Quarter: 2018Q1

REPORT INFORMATION
  Report Type: Spontaneous
  Country: US (occurrence: US)
  Receive Date: 20180215
  Receipt Date: 20180215
  Transmission Date: 20180509
  Serious: No
  Sender: FDA-Public Use
  Company Number: US-BAYER-2018-021988

PATIENT
  Age: 75 Year
  Sex: Male
  Weight: 181.41 kg

DRUGS (1)
  1. ALEVE [Suspect]
     Active Substance: NAPROXEN SODIUM
     Indication: ARTHRALGIA
     Dosage: 4 DF, UNK
     Route: 048
     Dates: start: 20180201

REACTIONS (3)
  - Product use complaint [None]
  - Product label issue [None]
  - Extra dose administered [Unknown]

NARRATIVE: CASE EVENT DATE: 20180201
